FAERS Safety Report 12091745 (Version 2)
Quarter: 2016Q1

REPORT INFORMATION
  Report Type: Spontaneous
  Country: US (occurrence: US)
  Receive Date: 20160218
  Receipt Date: 20160324
  Transmission Date: 20160526
  Serious: No
  Sender: FDA-Public Use
  Company Number: US-009507513-1602USA007676

PATIENT
  Age: 28 Year
  Sex: Female

DRUGS (2)
  1. NEXPLANON [Suspect]
     Active Substance: ETONOGESTREL
     Indication: CONTRACEPTION
     Dosage: 68 MG 1 STANDARD PACKAGE PREFLAPP OF 1; 68 MG/ 3 YEARS
     Route: 059
     Dates: start: 20151118, end: 20151125
  2. NEXPLANON [Suspect]
     Active Substance: ETONOGESTREL
     Dosage: 68 MG 1 STANDARD PACKAGE PREFLAPP OF 1; 68 MG/ 3 YEARS
     Route: 059
     Dates: start: 20151125

REACTIONS (1)
  - Adverse event [Unknown]

NARRATIVE: CASE EVENT DATE: 20151125
